FAERS Safety Report 5906763-8 (Version None)
Quarter: 2008Q3

REPORT INFORMATION
  Report Type: 
  Country: None (occurrence: None)
  Receive Date: 20080930
  Receipt Date: 20080915
  Transmission Date: 20090109
  Serious: Yes (Disabling)
  Sender: FDA-Public Use
  Company Number: 2008S1016776

PATIENT
  Age: 3 Decade
  Sex: Male

DRUGS (5)
  1. FLUPENTIXOL (FLUPENTIXOL) [Suspect]
     Indication: SCHIZOAFFECTIVE DISORDER
     Dosage: 20 MG;  INTRAMUSCULAR
     Route: 030
  2. BIPERIDEN HYDROCHLORIDE TAB [Suspect]
  3. HALOPERIDOL [Suspect]
  4. ARIPIPRAZOLE [Suspect]
     Indication: SCHIZOAFFECTIVE DISORDER
     Dosage: 10 MG
  5. CLOZAPINE [Suspect]
     Indication: SCHIZOAFFECTIVE DISORDER

REACTIONS (10)
  - DRUG INTOLERANCE [None]
  - DYSPHAGIA [None]
  - HYPOTENSION [None]
  - INFLUENZA LIKE ILLNESS [None]
  - NO THERAPEUTIC RESPONSE [None]
  - OROMANDIBULAR DYSTONIA [None]
  - SOCIAL PROBLEM [None]
  - SPEECH DISORDER [None]
  - SYNCOPE [None]
  - TARDIVE DYSKINESIA [None]
